FAERS Safety Report 7301410-5 (Version None)
Quarter: 2011Q1

REPORT INFORMATION
  Report Type: 
  Country: None (occurrence: None)
  Receive Date: 20110113
  Receipt Date: 20100923
  Transmission Date: 20110831
  Serious: No
  Sender: FDA-Public Use
  Company Number: US-001307

PATIENT
  Sex: Male
  Weight: 111.1313 kg

DRUGS (5)
  1. KUVAN [Suspect]
     Indication: PHENYLKETONURIA
     Dosage: 1800 MG QD ORAL
     Route: 048
     Dates: start: 20100801
  2. HYDROCHLOROTHIAZIDE [Concomitant]
  3. CARVEDILOL [Concomitant]
  4. CITALOPRAM [Concomitant]
  5. LISINOPRIL [Concomitant]

REACTIONS (4)
  - ENERGY INCREASED [None]
  - LIBIDO INCREASED [None]
  - THERAPEUTIC RESPONSE UNEXPECTED [None]
  - DIARRHOEA [None]
